FAERS Safety Report 13159030 (Version 1)
Quarter: 2017Q1

REPORT INFORMATION
  Report Type: Spontaneous
  Country: US (occurrence: US)
  Receive Date: 20170127
  Receipt Date: 20170127
  Transmission Date: 20170428
  Serious: Yes (Other)
  Sender: FDA-Public Use
  Company Number: US-SAGENTPRD-2017-US-000009

PATIENT
  Age: 48 Year
  Sex: Female

DRUGS (4)
  1. PANITUMUMAB [Concomitant]
     Active Substance: PANITUMUMAB
  2. LEUCOVORIN CALCIUM FOR INJECTION [Suspect]
     Active Substance: LEUCOVORIN CALCIUM
     Dosage: 200 MG/M2
  3. OXALIPLATIN. [Concomitant]
     Active Substance: OXALIPLATIN
  4. FLUOROURACIL. [Concomitant]
     Active Substance: FLUOROURACIL

REACTIONS (2)
  - Encephalopathy [Unknown]
  - Coma [Unknown]
